FAERS Safety Report 8474535-9 (Version None)
Quarter: 2012Q2

REPORT INFORMATION
  Report Type: 
  Country: None (occurrence: None)
  Receive Date: 20120628
  Receipt Date: 20120621
  Transmission Date: 20120825
  Serious: No
  Sender: FDA-Public Use
  Company Number: US-B.I. PHARMACEUTICALS,INC./RIDGEFIELD-2012-BP-14216BP

PATIENT
  Sex: Female

DRUGS (8)
  1. SPIRIVA [Suspect]
     Indication: ASTHMA
     Dosage: 18 MCG
     Route: 055
     Dates: start: 20120501
  2. SIMVASTATIN [Concomitant]
     Indication: BLOOD CHOLESTEROL
  3. METOPROLOL TARTRATE [Concomitant]
     Indication: CARDIAC DISORDER
  4. AMIODARONE HYDROCHLORIDE [Concomitant]
     Indication: CARDIAC DISORDER
  5. ALBUTEROL [Concomitant]
     Indication: ASTHMA
  6. PRADAXA [Concomitant]
     Indication: CARDIAC DISORDER
  7. DIOVAN [Concomitant]
     Indication: CARDIAC DISORDER
  8. ASMANEX TWISTHALER [Concomitant]
     Indication: ASTHMA

REACTIONS (1)
  - WHEEZING [None]
